FAERS Safety Report 8249085-5 (Version None)
Quarter: 2012Q2

REPORT INFORMATION
  Report Type: 
  Country: None (occurrence: None)
  Receive Date: 20120402
  Receipt Date: 20120327
  Transmission Date: 20120825
  Serious: No
  Sender: FDA-Public Use
  Company Number: US-PFIZER INC-2012063440

PATIENT
  Sex: Male

DRUGS (4)
  1. FLECTOR [Suspect]
     Indication: ARTHRALGIA
  2. FLECTOR [Suspect]
     Indication: PAIN IN EXTREMITY
     Dosage: 1.3 %, EVERY 12 HOURS
     Dates: start: 20120308
  3. FLECTOR [Suspect]
     Indication: PAIN
  4. FLECTOR [Suspect]
     Indication: MUSCULOSKELETAL PAIN

REACTIONS (1)
  - DRUG INEFFECTIVE [None]
